FAERS Safety Report 22156795 (Version 14)
Quarter: 2023Q4

REPORT INFORMATION
  Report Type: Spontaneous
  Country: US (occurrence: US)
  Receive Date: 20230330
  Receipt Date: 20231211
  Transmission Date: 20240109
  Serious: Yes (Hospitalization, Other)
  Sender: FDA-Public Use
  Company Number: US-PFIZER INC-PV202300045470

PATIENT
  Age: 89 Year
  Sex: Male

DRUGS (9)
  1. BRAFTOVI [Suspect]
     Active Substance: ENCORAFENIB
     Indication: Metastatic malignant melanoma
     Dosage: 75 MG, 3X/DAY
     Route: 048
  2. BRAFTOVI [Suspect]
     Active Substance: ENCORAFENIB
     Dosage: 3 DF, 2X/DAY (3 TABLETS TWICE DAILY)
     Route: 048
  3. BRAFTOVI [Suspect]
     Active Substance: ENCORAFENIB
     Dosage: 4 CAPS (300MG TOTAL) ONCE A DAY
     Route: 048
     Dates: end: 202303
  4. BRAFTOVI [Suspect]
     Active Substance: ENCORAFENIB
     Dosage: 3 CAPSULES (225 MG TOTAL) ONCE DAILY
     Route: 048
  5. MEKTOVI [Suspect]
     Active Substance: BINIMETINIB
     Indication: Metastatic malignant melanoma
     Dosage: 2 TABLETS (30 MG TOTAL) TWICE DAILY
     Route: 048
  6. MEKTOVI [Suspect]
     Active Substance: BINIMETINIB
     Dosage: 4 CAPSULES ONCE DAILY
     Route: 048
  7. MEKTOVI [Suspect]
     Active Substance: BINIMETINIB
     Dosage: 15 MG, 3 TABS (45MG TOTAL)  TWICE DAILY
     Route: 048
     Dates: end: 202303
  8. MEKTOVI [Suspect]
     Active Substance: BINIMETINIB
     Dosage: 15 MG, TWO IN THE MORNING AND TWO IN THE EVENING
     Route: 048
  9. MEKTOVI [Suspect]
     Active Substance: BINIMETINIB
     Dosage: 4 DF, 1X/DAY (4 CAPSULES ONCE DAILY)
     Route: 048

REACTIONS (9)
  - Ocular discomfort [Not Recovered/Not Resolved]
  - Eye haemorrhage [Unknown]
  - Blindness unilateral [Unknown]
  - Retinal vein occlusion [Not Recovered/Not Resolved]
  - Thrombosis [Unknown]
  - Discomfort [Recovering/Resolving]
  - Neoplasm recurrence [Unknown]
  - Off label use [Unknown]
  - Product prescribing error [Unknown]

NARRATIVE: CASE EVENT DATE: 20230301
